FAERS Safety Report 25140537 (Version 1)
Quarter: 2025Q1

REPORT INFORMATION
  Report Type: Spontaneous
  Country: FR (occurrence: FR)
  Receive Date: 20250331
  Receipt Date: 20250331
  Transmission Date: 20250408
  Serious: Yes (Other)
  Sender: MYLAN
  Company Number: None

PATIENT
  Age: 33 Year
  Sex: Male

DRUGS (24)
  1. LYRICA [Suspect]
     Active Substance: PREGABALIN
     Indication: Product used for unknown indication
  2. LYRICA [Suspect]
     Active Substance: PREGABALIN
     Route: 065
  3. LYRICA [Suspect]
     Active Substance: PREGABALIN
     Route: 065
  4. LYRICA [Suspect]
     Active Substance: PREGABALIN
  5. BROMAZEPAM [Suspect]
     Active Substance: BROMAZEPAM
     Indication: Product used for unknown indication
  6. BROMAZEPAM [Suspect]
     Active Substance: BROMAZEPAM
     Route: 065
  7. BROMAZEPAM [Suspect]
     Active Substance: BROMAZEPAM
     Route: 065
  8. BROMAZEPAM [Suspect]
     Active Substance: BROMAZEPAM
  9. MIDOMAFETAMINE [Suspect]
     Active Substance: MIDOMAFETAMINE
     Indication: Product used for unknown indication
  10. MIDOMAFETAMINE [Suspect]
     Active Substance: MIDOMAFETAMINE
     Route: 065
  11. MIDOMAFETAMINE [Suspect]
     Active Substance: MIDOMAFETAMINE
     Route: 065
  12. MIDOMAFETAMINE [Suspect]
     Active Substance: MIDOMAFETAMINE
  13. ALCOHOL [Suspect]
     Active Substance: ALCOHOL
     Indication: Product used for unknown indication
  14. ALCOHOL [Suspect]
     Active Substance: ALCOHOL
     Route: 065
  15. ALCOHOL [Suspect]
     Active Substance: ALCOHOL
     Route: 065
  16. ALCOHOL [Suspect]
     Active Substance: ALCOHOL
  17. RIVOTRIL [Suspect]
     Active Substance: CLONAZEPAM
     Indication: Product used for unknown indication
  18. RIVOTRIL [Suspect]
     Active Substance: CLONAZEPAM
     Route: 065
  19. RIVOTRIL [Suspect]
     Active Substance: CLONAZEPAM
     Route: 065
  20. RIVOTRIL [Suspect]
     Active Substance: CLONAZEPAM
  21. VALIUM [Suspect]
     Active Substance: DIAZEPAM
     Indication: Product used for unknown indication
  22. VALIUM [Suspect]
     Active Substance: DIAZEPAM
     Route: 065
  23. VALIUM [Suspect]
     Active Substance: DIAZEPAM
     Route: 065
  24. VALIUM [Suspect]
     Active Substance: DIAZEPAM

REACTIONS (3)
  - Drug use disorder [Unknown]
  - Substance use disorder [Unknown]
  - Coma [Recovered/Resolved]

NARRATIVE: CASE EVENT DATE: 20241003
